FAERS Safety Report 25851996 (Version 2)
Quarter: 2025Q3

REPORT INFORMATION
  Report Type: Report from Study
  Country: CA (occurrence: CA)
  Receive Date: 20250926
  Receipt Date: 20250929
  Transmission Date: 20251021
  Serious: Yes (Hospitalization, Other)
  Sender: CSL BEHRING
  Company Number: CA-BEH-2025219562

PATIENT
  Age: 71 Year
  Sex: Female
  Weight: 56.9 kg

DRUGS (5)
  1. HAEMATE P [Suspect]
     Active Substance: ANTIHEMOPHILIC FACTOR HUMAN
     Indication: Von Willebrand^s disease
     Dosage: 3414 IU, OD
     Route: 042
  2. VITAMIN B12 [Concomitant]
     Active Substance: CYANOCOBALAMIN
     Indication: Product used for unknown indication
     Route: 065
  3. TRANEXAMIC ACID [Concomitant]
     Active Substance: TRANEXAMIC ACID
     Indication: Product used for unknown indication
     Route: 065
  4. LIPITOR [Concomitant]
     Active Substance: ATORVASTATIN CALCIUM
  5. PANTOPRAZOLE SODIUM [Concomitant]
     Active Substance: PANTOPRAZOLE SODIUM

REACTIONS (7)
  - Gastrointestinal haemorrhage [Unknown]
  - Hospitalisation [Unknown]
  - Hospitalisation [Unknown]
  - Malaise [Unknown]
  - Crying [Unknown]
  - Depression [Unknown]
  - Central venous catheterisation [Unknown]

NARRATIVE: CASE EVENT DATE: 20250801
